FAERS Safety Report 4565857-2 (Version None)
Quarter: 2005Q1

REPORT INFORMATION
  Report Type: 
  Country: None (occurrence: None)
  Receive Date: 20050128
  Receipt Date: 20050113
  Transmission Date: 20050727
  Serious: Yes (Hospitalization)
  Sender: FDA-Public Use
  Company Number: 2004S1000286

PATIENT
  Age: 35 Year
  Sex: Male

DRUGS (1)
  1. ACITRETIN (ACITRETIN) [Suspect]
     Dosage: 35 MG;QD; ORAL
     Route: 048
     Dates: start: 19890615

REACTIONS (2)
  - VESTIBULAR DISORDER [None]
  - VOMITING [None]
